APPROVED DRUG PRODUCT: NAPROXEN
Active Ingredient: NAPROXEN
Strength: 375MG
Dosage Form/Route: TABLET, DELAYED RELEASE;ORAL
Application: A091432 | Product #001 | TE Code: AB
Applicant: NUVO PHAMACEUTICALS INC
Approved: Sep 19, 2011 | RLD: No | RS: No | Type: RX